FAERS Safety Report 5086898-5 (Version None)
Quarter: 2006Q3

REPORT INFORMATION
  Report Type: 
  Country: None (occurrence: None)
  Receive Date: 20060818
  Receipt Date: 20060807
  Transmission Date: 20061208
  Serious: Yes (Death, Hospitalization)
  Sender: FDA-Public Use
  Company Number: 163-20785-06060394

PATIENT
  Age: 52 Year
  Sex: Male

DRUGS (5)
  1. THALOMID [Suspect]
     Indication: MULTIPLE MYELOMA
     Dosage: SEE IMAGE
     Route: 048
     Dates: start: 20051001, end: 20060101
  2. THALOMID [Suspect]
     Indication: MULTIPLE MYELOMA
     Dosage: SEE IMAGE
     Route: 048
     Dates: start: 20051001, end: 20060307
  3. VELCADE [Suspect]
     Indication: MULTIPLE MYELOMA
     Dates: start: 20050101
  4. CYCLOPHOSPHAMIDE [Suspect]
     Indication: MULTIPLE MYELOMA
     Dates: start: 20050101, end: 20060307
  5. DEXAMETHASONE [Concomitant]

REACTIONS (23)
  - ACIDOSIS [None]
  - BLOOD CULTURE POSITIVE [None]
  - DISEASE PROGRESSION [None]
  - DRUG HYPERSENSITIVITY [None]
  - EPISTAXIS [None]
  - ESCHERICHIA INFECTION [None]
  - FEBRILE NEUTROPENIA [None]
  - HAEMATOCRIT DECREASED [None]
  - HAEMOGLOBIN DECREASED [None]
  - HYPOXIA [None]
  - LIVER FUNCTION TEST ABNORMAL [None]
  - MULTIPLE MYELOMA [None]
  - PATHOGEN RESISTANCE [None]
  - PERICARDITIS [None]
  - PETECHIAE [None]
  - PLATELET COUNT DECREASED [None]
  - PLEURITIC PAIN [None]
  - PNEUMONIA [None]
  - PULMONARY MASS [None]
  - PULMONARY NECROSIS [None]
  - SEPTIC SHOCK [None]
  - STREPTOCOCCAL INFECTION [None]
  - THROMBOCYTOPENIA [None]
